FAERS Safety Report 13949372 (Version 1)
Quarter: 2017Q3

REPORT INFORMATION
  Report Type: Spontaneous
  Country: ZA (occurrence: ZA)
  Receive Date: 20170908
  Receipt Date: 20170908
  Transmission Date: 20171128
  Serious: Yes (Other)
  Sender: FDA-Public Use
  Company Number: ZA-SA-2017SA163948

PATIENT
  Age: 59 Year
  Sex: Female

DRUGS (6)
  1. SALAZOPYRIN [Concomitant]
     Active Substance: SULFASALAZINE
  2. HUMIRA [Suspect]
     Active Substance: ADALIMUMAB
     Dosage: 2W
     Route: 065
     Dates: start: 20130206, end: 20130414
  3. METHOTREXATE. [Suspect]
     Active Substance: METHOTREXATE
     Indication: RHEUMATOID ARTHRITIS
     Route: 065
     Dates: start: 20100720, end: 20120529
  4. ENBREL [Concomitant]
     Active Substance: ETANERCEPT
     Route: 058
     Dates: start: 20170414
  5. CHLOROQUINE. [Suspect]
     Active Substance: CHLOROQUINE
     Route: 065
  6. ARAVA [Suspect]
     Active Substance: LEFLUNOMIDE
     Route: 048

REACTIONS (6)
  - Nausea [Unknown]
  - Aphthous ulcer [Unknown]
  - Eye disorder [Unknown]
  - Headache [Unknown]
  - Rash [Unknown]
  - Hepatic fibrosis [Unknown]
